FAERS Safety Report 18381274 (Version 1)
Quarter: 2020Q4

REPORT INFORMATION
  Report Type: Spontaneous
  Country: US (occurrence: US)
  Receive Date: 20201013
  Receipt Date: 20201013
  Transmission Date: 20210114
  Serious: Yes (Hospitalization)
  Sender: FDA-Public Use
  Company Number: None

PATIENT
  Age: 63 Year
  Sex: Female

DRUGS (11)
  1. GABAPENTIN. [Concomitant]
     Active Substance: GABAPENTIN
  2. HYDROMORPHON [Concomitant]
     Active Substance: HYDROMORPHONE
  3. ATENOLOL. [Concomitant]
     Active Substance: ATENOLOL
  4. ESTRADIOL. [Concomitant]
     Active Substance: ESTRADIOL
  5. AMLODIPINE [Concomitant]
     Active Substance: AMLODIPINE BESYLATE
  6. FLUOXETINE [Concomitant]
     Active Substance: FLUOXETINE HYDROCHLORIDE
  7. PRALUENT [Suspect]
     Active Substance: ALIROCUMAB
     Indication: TYPE IIA HYPERLIPIDAEMIA
     Dosage: ?          OTHER FREQUENCY:Q2WKS;?
     Route: 058
     Dates: start: 20190731
  8. CHLORTHALID [Concomitant]
     Active Substance: CHLORTHALIDONE
  9. METOPROLOL. [Concomitant]
     Active Substance: METOPROLOL
  10. OLMESA [Concomitant]
  11. FLUCONAZOLE. [Concomitant]
     Active Substance: FLUCONAZOLE

REACTIONS (2)
  - Product dose omission issue [None]
  - Hip arthroplasty [None]

NARRATIVE: CASE EVENT DATE: 20201001
